FAERS Safety Report 19126273 (Version 3)
Quarter: 2024Q2

REPORT INFORMATION
  Report Type: Spontaneous
  Country: CA (occurrence: CA)
  Receive Date: 20210412
  Receipt Date: 20240528
  Transmission Date: 20240716
  Serious: Yes (Other)
  Sender: FDA-Public Use
  Company Number: CA-PFIZER INC-2021383107

PATIENT
  Age: 59 Year
  Sex: Female
  Weight: 129 kg

DRUGS (3)
  1. METHOTREXATE SODIUM [Suspect]
     Active Substance: METHOTREXATE SODIUM
     Dosage: 1 DF
     Route: 065
     Dates: start: 202010, end: 202102
  2. JARDIANCE [Concomitant]
     Active Substance: EMPAGLIFLOZIN
     Dosage: 1 DF
  3. PREDNISONE [Concomitant]
     Active Substance: PREDNISONE
     Dosage: 50 MG (PO INCREASED DOSE)
     Route: 048

REACTIONS (5)
  - Granulomatosis with polyangiitis [Unknown]
  - Drug ineffective [Unknown]
  - Abdominal pain upper [Unknown]
  - Chest pain [Unknown]
  - Illness [Unknown]

NARRATIVE: CASE EVENT DATE: 20200101
